FAERS Safety Report 11625853 (Version 2)
Quarter: 2015Q4

REPORT INFORMATION
  Report Type: Report from Study
  Country: US (occurrence: US)
  Receive Date: 20151013
  Receipt Date: 20151023
  Transmission Date: 20160304
  Serious: Yes (Hospitalization)
  Sender: FDA-Public Use
  Company Number: US-GILEAD-2015-0176341

PATIENT
  Age: 65 Year
  Sex: Female

DRUGS (3)
  1. AMBRISENTAN [Suspect]
     Active Substance: AMBRISENTAN
     Indication: PULMONARY ARTERIAL HYPERTENSION
     Dosage: 10 MG, QD
     Route: 065
     Dates: start: 20110418
  2. REMODULIN [Concomitant]
     Active Substance: TREPROSTINIL
  3. LASIX [Concomitant]
     Active Substance: FUROSEMIDE

REACTIONS (6)
  - Discomfort [Unknown]
  - Fluid retention [Unknown]
  - Rales [Unknown]
  - Gait disturbance [Unknown]
  - Eye oedema [Unknown]
  - Musculoskeletal discomfort [Recovering/Resolving]
